FAERS Safety Report 9865544 (Version 2)
Quarter: 2014Q1

REPORT INFORMATION
  Report Type: Spontaneous
  Country: US (occurrence: US)
  Receive Date: 20140203
  Receipt Date: 20140211
  Transmission Date: 20141002
  Serious: No
  Sender: FDA-Public Use
  Company Number: US-ELI_LILLY_AND_COMPANY-US201401010765

PATIENT
  Age: 61 Year
  Sex: Male

DRUGS (8)
  1. CIALIS [Suspect]
     Indication: PROSTATECTOMY
     Dosage: 5 MG, QD
     Route: 065
     Dates: start: 201401
  2. NEURONTIN [Concomitant]
     Dosage: 2000 MG, QD
     Route: 065
  3. PREVACID [Concomitant]
     Dosage: 30 MG, QD
     Route: 065
  4. TYLENOL                            /00020001/ [Concomitant]
     Dosage: 1 DF, QD
     Route: 065
  5. CIPRO                              /00697201/ [Concomitant]
     Dosage: 500 MG, BID
     Route: 065
  6. VALIUM                             /00017001/ [Concomitant]
     Dosage: 1 DF, PRN
     Route: 065
  7. ACIDOPHILUS [Concomitant]
     Indication: PROBIOTIC THERAPY
     Dosage: 1 DF, UNKNOWN
     Route: 065
  8. SENNA                              /00142201/ [Concomitant]
     Dosage: 1 DF, UNKNOWN
     Route: 065

REACTIONS (3)
  - Vision blurred [Recovering/Resolving]
  - Off label use [Not Recovered/Not Resolved]
  - Wrong technique in drug usage process [Not Recovered/Not Resolved]
